FAERS Safety Report 5647301-7 (Version None)
Quarter: 2008Q1

REPORT INFORMATION
  Report Type: 
  Country: None (occurrence: None)
  Receive Date: 20080131
  Receipt Date: 20071204
  Transmission Date: 20080703
  Serious: No
  Sender: FDA-Public Use
  Company Number: 163-21880-07120238

PATIENT
  Age: 55 Year
  Sex: Male

DRUGS (10)
  1. REVLIMID [Suspect]
     Indication: MULTIPLE MYELOMA
     Dosage: SEE IMAGE
     Route: 048
     Dates: start: 20070815, end: 20071001
  2. REVLIMID [Suspect]
     Indication: MULTIPLE MYELOMA
     Dosage: SEE IMAGE
     Route: 048
     Dates: start: 20071001, end: 20071101
  3. REVLIMID [Suspect]
     Indication: MULTIPLE MYELOMA
     Dosage: SEE IMAGE
     Route: 048
     Dates: start: 20071101, end: 20071101
  4. REVLIMID [Suspect]
     Indication: MULTIPLE MYELOMA
     Dosage: SEE IMAGE
     Route: 048
     Dates: start: 20071105, end: 20071101
  5. REVLIMID [Suspect]
     Indication: MULTIPLE MYELOMA
     Dosage: SEE IMAGE
     Route: 048
     Dates: start: 20071203
  6. DEXAMETHASONE TAB [Concomitant]
  7. ASPIRIN [Concomitant]
  8. AREDIA [Concomitant]
  9. VIAGRA [Concomitant]
  10. COLACE (DOCUSATE SODIUM) [Concomitant]

REACTIONS (1)
  - MUSCLE SPASMS [None]
